FAERS Safety Report 6203790-0 (Version None)
Quarter: 2009Q2

REPORT INFORMATION
  Report Type: 
  Country: None (occurrence: None)
  Receive Date: 20090526
  Receipt Date: 20090526
  Transmission Date: 20091009
  Serious: Yes (Other)
  Sender: FDA-Public Use
  Company Number: None

PATIENT
  Age: 39 Year
  Sex: Female
  Weight: 79.3795 kg

DRUGS (4)
  1. ACYCLOVIR [Suspect]
     Indication: ANTIVIRAL PROPHYLAXIS
     Dosage: 400 MG BID PO
     Route: 048
     Dates: start: 20090416, end: 20090524
  2. ACYCLOVIR [Suspect]
     Indication: CHEMOTHERAPY
     Dosage: 400 MG BID PO
     Route: 048
     Dates: start: 20090416, end: 20090524
  3. PROZAC [Concomitant]
  4. ZOMIG [Concomitant]

REACTIONS (2)
  - PRURITUS [None]
  - SKIN DISORDER [None]
